FAERS Safety Report 12683251 (Version 1)
Quarter: 2016Q3

REPORT INFORMATION
  Report Type: Spontaneous
  Country: CA (occurrence: CA)
  Receive Date: 20160825
  Receipt Date: 20160825
  Transmission Date: 20161109
  Serious: Yes (Hospitalization, Other)
  Sender: FDA-Public Use
  Company Number: CA-MYLANLABS-2016M1035353

PATIENT

DRUGS (3)
  1. NORETHISTERONE [Suspect]
     Active Substance: NORETHINDRONE
     Indication: CONTRACEPTION
     Dosage: 0.35 MG, QD
     Route: 048
  2. MICRONOR [Suspect]
     Active Substance: NORETHINDRONE
  3. MULTIVITAMIN                       /00097801/ [Concomitant]
     Active Substance: VITAMINS

REACTIONS (4)
  - Pelvic pain [Recovering/Resolving]
  - Pyrexia [Recovering/Resolving]
  - Haemorrhagic ovarian cyst [Recovering/Resolving]
  - Appendicitis [Recovering/Resolving]
